FAERS Safety Report 12801819 (Version 3)
Quarter: 2017Q3

REPORT INFORMATION
  Report Type: Other
  Country: JP (occurrence: JP)
  Receive Date: 20161003
  Receipt Date: 20170914
  Transmission Date: 20171127
  Serious: Yes (Death, Life-Threatening, Other)
  Sender: FDA-Public Use
  Company Number: JP-ASTELLAS-2016JP015985AA

PATIENT
  Age: 83 Year
  Sex: Female
  Weight: 39 kg

DRUGS (19)
  1. FUNGUARD [Suspect]
     Active Substance: MICAFUNGIN SODIUM
     Indication: FUNGAL INFECTION
     Route: 041
     Dates: start: 20160905, end: 20160906
  2. INTRALIPOS [Concomitant]
     Active Substance: SOYBEAN OIL
     Indication: PRODUCT USED FOR UNKNOWN INDICATION
     Dosage: UNK UNK, EVERY OTHER DAY
     Route: 065
  3. TROXSIN [Concomitant]
     Active Substance: TROXIPIDE
     Indication: PRODUCT USED FOR UNKNOWN INDICATION
     Dosage: 100 MG, TWICE DAILY, AFTER BREAKFAST AND DINNER
     Route: 065
  4. HIRUDOID MILD [Concomitant]
     Indication: PRODUCT USED FOR UNKNOWN INDICATION
     Dosage: UNK UNK, TWICE DAILY
     Route: 065
  5. CRESTOR [Concomitant]
     Active Substance: ROSUVASTATIN CALCIUM
     Indication: PRODUCT USED FOR UNKNOWN INDICATION
     Dosage: 2.5 MG, ONCE DAILY, AFTER BREAKFAST
     Route: 065
  6. ELNEOPA NO.2 [Concomitant]
     Active Substance: AMINO ACIDS\CARBOHYDRATES\ELECTROLYTES NOS\VITAMINS
     Indication: PRODUCT USED FOR UNKNOWN INDICATION
     Dosage: UNK UNK, CONTINUOUS
     Route: 065
  7. CRAVIT [Concomitant]
     Active Substance: LEVOFLOXACIN
     Indication: PYREXIA
     Route: 065
     Dates: start: 20160917
  8. MAGMITT [Concomitant]
     Active Substance: MAGNESIUM OXIDE
     Indication: PRODUCT USED FOR UNKNOWN INDICATION
     Dosage: 330 MG, THRICE DAILY, EVERY AFTER MEAL
     Route: 065
  9. CILOSTAZOL. [Concomitant]
     Active Substance: CILOSTAZOL
     Indication: PRODUCT USED FOR UNKNOWN INDICATION
     Dosage: 100 MG, TWICE DAILY, AFTER BREAKFAST AND DINNER
     Route: 065
  10. ZOSYN [Concomitant]
     Active Substance: PIPERACILLIN SODIUM\TAZOBACTAM SODIUM
     Indication: PRODUCT USED FOR UNKNOWN INDICATION
     Route: 065
     Dates: start: 20160902, end: 20160912
  11. IRRADIATED FROZEN THAWED RED CELLS [Concomitant]
     Indication: HAEMOGLOBIN DECREASED
     Route: 065
     Dates: start: 20160909, end: 20160909
  12. EDIROL [Concomitant]
     Active Substance: ELDECALCITOL
     Indication: PRODUCT USED FOR UNKNOWN INDICATION
     Dosage: 0.5 UG, ONCE DAILY, AFTER BREAKFAST
     Route: 065
  13. VENAPASTA [Concomitant]
     Indication: PRODUCT USED FOR UNKNOWN INDICATION
     Dosage: UNK UNK, ONCE DAILY
     Route: 065
  14. VANCOMYCIN [Concomitant]
     Active Substance: VANCOMYCIN
     Indication: PRODUCT USED FOR UNKNOWN INDICATION
     Route: 065
     Dates: start: 20160903, end: 20160905
  15. FUNGUARD [Suspect]
     Active Substance: MICAFUNGIN SODIUM
     Route: 041
     Dates: start: 20160921, end: 20160921
  16. AZUNOL                             /00317302/ [Concomitant]
     Indication: PRODUCT USED FOR UNKNOWN INDICATION
     Dosage: UNK UNK, A FEW TIMES DAILY
     Route: 065
  17. CEFEPIME [Concomitant]
     Active Substance: CEFEPIME HYDROCHLORIDE
     Indication: PRODUCT USED FOR UNKNOWN INDICATION
     Route: 065
     Dates: start: 20160826, end: 20160830
  18. MEROPEN                            /01250501/ [Concomitant]
     Active Substance: MEROPENEM
     Indication: PRODUCT USED FOR UNKNOWN INDICATION
     Route: 065
     Dates: start: 20160831, end: 20160902
  19. AMBISOME [Concomitant]
     Active Substance: AMPHOTERICIN B
     Indication: PRODUCT USED FOR UNKNOWN INDICATION
     Route: 065
     Dates: start: 20160907, end: 20160909

REACTIONS (2)
  - Anaphylactic shock [Unknown]
  - Intravascular haemolysis [Fatal]

NARRATIVE: CASE EVENT DATE: 20160921
